FAERS Safety Report 24120152 (Version 1)
Quarter: 2024Q3

REPORT INFORMATION
  Report Type: Report from Study
  Country: US (occurrence: None)
  Receive Date: 20240722
  Receipt Date: 20240722
  Transmission Date: 20241017
  Serious: Yes (Other)
  Sender: ASTRAZENECA
  Company Number: 2020SE53115

PATIENT
  Age: 59 Year
  Sex: Male

DRUGS (1)
  1. LYNPARZA [Suspect]
     Active Substance: OLAPARIB
     Indication: Prostate cancer
     Route: 048

REACTIONS (5)
  - Abnormal faeces [Unknown]
  - Metastases to spine [Unknown]
  - Haematochezia [Unknown]
  - Decreased appetite [Unknown]
  - Asthenia [Unknown]
